FAERS Safety Report 7187172-3 (Version None)
Quarter: 2010Q4

REPORT INFORMATION
  Report Type: 
  Country: None (occurrence: None)
  Receive Date: 20101222
  Receipt Date: 20101220
  Transmission Date: 20110411
  Serious: Yes (Life-Threatening, Hospitalization)
  Sender: FDA-Public Use
  Company Number: JP-PFIZER INC-HQWYE880705MAR03

PATIENT
  Age: 46 Year
  Sex: Male

DRUGS (3)
  1. TAZOCIN [Suspect]
     Indication: PNEUMONIA
     Dosage: 5 G, 1X/DAY
     Route: 041
     Dates: start: 20030205, end: 20030208
  2. OSELTAMIVIR [Suspect]
     Indication: INFLUENZA
     Dosage: 150 MG, 1X/DAY
     Route: 048
     Dates: start: 20030131, end: 20030204
  3. ZITHROMAX [Suspect]
     Indication: PNEUMONIA
     Dosage: 2 TABLETS DAILY
     Route: 048
     Dates: start: 20030207, end: 20030208

REACTIONS (6)
  - ALANINE AMINOTRANSFERASE INCREASED [None]
  - ASPARTATE AMINOTRANSFERASE INCREASED [None]
  - BLOOD LACTATE DEHYDROGENASE INCREASED [None]
  - GAMMA-GLUTAMYLTRANSFERASE INCREASED [None]
  - HEPATIC FUNCTION ABNORMAL [None]
  - SHOCK [None]
